FAERS Safety Report 11449917 (Version 1)
Quarter: 2015Q3

REPORT INFORMATION
  Report Type: Spontaneous
  Country: US (occurrence: US)
  Receive Date: 20150903
  Receipt Date: 20150903
  Transmission Date: 20151125
  Serious: No
  Sender: FDA-Public Use
  Company Number: US-ROCHE-1083401

PATIENT
  Sex: Male

DRUGS (5)
  1. PEGASYS [Suspect]
     Active Substance: PEGINTERFERON ALFA-2A
     Dosage: SECOND TREATMENT
     Route: 065
     Dates: start: 200104, end: 200503
  2. RIBAVIRIN. [Suspect]
     Active Substance: RIBAVIRIN
     Dosage: SECOND TREATMENT
     Route: 065
     Dates: start: 200104, end: 200503
  3. PEGASYS [Suspect]
     Active Substance: PEGINTERFERON ALFA-2A
     Indication: HEPATITIS C
     Dosage: THIRD TREATMENT
     Route: 065
     Dates: start: 20110811
  4. RIBAVIRIN. [Suspect]
     Active Substance: RIBAVIRIN
     Indication: HEPATITIS C
     Dosage: THIRD TREATMENT
     Route: 065
     Dates: start: 20110811
  5. TELAPREVIR [Suspect]
     Active Substance: TELAPREVIR
     Indication: HEPATITIS C
     Dosage: THIRD TREATMENT
     Route: 065
     Dates: start: 20110811

REACTIONS (2)
  - Chills [Unknown]
  - Headache [Unknown]
